FAERS Safety Report 5011173-4 (Version None)
Quarter: 2006Q2

REPORT INFORMATION
  Report Type: 
  Country: None (occurrence: None)
  Receive Date: 20060523
  Receipt Date: 20060523
  Transmission Date: 20061013
  Serious: Yes (Death)
  Sender: FDA-Public Use
  Company Number: None

PATIENT
  Age: 68 Year
  Sex: Male

DRUGS (2)
  1. HYDROMORPHONE [Suspect]
     Indication: PROCEDURAL PAIN
     Dosage: IV
     Route: 042
  2. BUPIVACAINE [Concomitant]

REACTIONS (8)
  - BLOOD PRESSURE IMMEASURABLE [None]
  - BLOOD PRESSURE SYSTOLIC INCREASED [None]
  - CARDIO-RESPIRATORY ARREST [None]
  - LOSS OF CONSCIOUSNESS [None]
  - POST PROCEDURAL COMPLICATION [None]
  - RESPIRATORY RATE INCREASED [None]
  - SNORING [None]
  - SOMNOLENCE [None]
